FAERS Safety Report 5643482-X (Version None)
Quarter: 2008Q1

REPORT INFORMATION
  Report Type: 
  Country: None (occurrence: None)
  Receive Date: 20080228
  Receipt Date: 20080217
  Transmission Date: 20080703
  Serious: Yes (Other)
  Sender: FDA-Public Use
  Company Number: US-PFIZER INC-2008016234

PATIENT
  Sex: Female

DRUGS (2)
  1. CHANTIX [Suspect]
  2. WELLBUTRIN [Concomitant]

REACTIONS (1)
  - DEPRESSION [None]
